FAERS Safety Report 9555305 (Version 1)
Quarter: 2013Q3

REPORT INFORMATION
  Report Type: Spontaneous
  Country: US (occurrence: US)
  Receive Date: 20130926
  Receipt Date: 20130926
  Transmission Date: 20140515
  Serious: Yes (Other)
  Sender: FDA-Public Use
  Company Number: US-JNJFOC-20130912435

PATIENT
  Age: 69 Year
  Sex: Male

DRUGS (8)
  1. INVOKANA [Suspect]
     Indication: TYPE 2 DIABETES MELLITUS
     Route: 048
     Dates: start: 201309, end: 201309
  2. INSULIN [Concomitant]
  3. JANUMET [Concomitant]
  4. CRESTOR [Concomitant]
  5. NUVIGIL [Concomitant]
  6. PROZAC [Concomitant]
  7. DIOVAN [Concomitant]
  8. MENTAX [Concomitant]

REACTIONS (1)
  - Depression [Recovered/Resolved]
